FAERS Safety Report 14479072 (Version 3)
Quarter: 2022Q2

REPORT INFORMATION
  Report Type: Spontaneous
  Country: JP (occurrence: JP)
  Receive Date: 20180202
  Receipt Date: 20220602
  Transmission Date: 20220721
  Serious: Yes (Other)
  Sender: FDA-Public Use
  Company Number: JP-BRISTOL-MYERS SQUIBB COMPANY-BMS-2018-006650

PATIENT
  Age: 69 Year
  Sex: Male

DRUGS (2)
  1. DASATINIB [Suspect]
     Active Substance: DASATINIB
     Indication: Chronic myeloid leukaemia
     Dosage: 100 MG, QD
     Route: 048
  2. DASATINIB [Suspect]
     Active Substance: DASATINIB
     Dosage: 50 MG, QD
     Route: 048

REACTIONS (3)
  - Enterocolitis haemorrhagic [Recovered/Resolved]
  - Cytomegalovirus infection [Unknown]
  - Pleural effusion [Recovered/Resolved]
